FAERS Safety Report 14591300 (Version 1)
Quarter: 2018Q1

REPORT INFORMATION
  Report Type: Spontaneous
  Country: US (occurrence: US)
  Receive Date: 20180302
  Receipt Date: 20180302
  Transmission Date: 20180509
  Serious: No
  Sender: FDA-Public Use
  Company Number: US-NOVOPROD-551577

PATIENT
  Age: 58 Year
  Sex: Female

DRUGS (3)
  1. HUMALIN [Concomitant]
     Active Substance: INSULIN NOS
     Indication: INSULIN RESISTANCE
  2. VICTOZA [Suspect]
     Active Substance: LIRAGLUTIDE
     Indication: PRODUCT USED FOR UNKNOWN INDICATION
     Dosage: 1.8 MG, UNK
     Route: 058
     Dates: start: 201706, end: 20170617
  3. VICTOZA [Suspect]
     Active Substance: LIRAGLUTIDE
     Dosage: UNK
     Route: 058

REACTIONS (4)
  - Stress [Unknown]
  - Pruritus generalised [Not Recovered/Not Resolved]
  - Blood glucose increased [Unknown]
  - Wound [Not Recovered/Not Resolved]

NARRATIVE: CASE EVENT DATE: 2017
